FAERS Safety Report 8790423 (Version 1)
Quarter: 2012Q4

REPORT INFORMATION
  Report Type: Spontaneous
  Country: US (occurrence: None)
  Receive Date: 20120911
  Receipt Date: 20120911
  Transmission Date: 20130627
  Serious: Yes (Other)
  Sender: FDA-Public Use
  Company Number: None

PATIENT
  Age: 43 Year
  Sex: Female
  Weight: 99 kg

DRUGS (1)
  1. JANUMET [Suspect]
     Indication: TYPE 2 DIABETES MELLITUS
     Dosage: 1 bid po
     Route: 048
     Dates: start: 20120907, end: 20120907

REACTIONS (4)
  - Myasthenia gravis [None]
  - Diarrhoea [None]
  - Vision blurred [None]
  - Eating disorder [None]
